FAERS Safety Report 20131491 (Version 1)
Quarter: 2021Q4

REPORT INFORMATION
  Report Type: Other
  Country: CA (occurrence: CA)
  Receive Date: 20211130
  Receipt Date: 20211130
  Transmission Date: 20220303
  Serious: Yes (Hospitalization, Other)
  Sender: FDA-Public Use
  Company Number: CA-ASTELLAS-2021US045832

PATIENT
  Age: 81 Year
  Sex: Male

DRUGS (1)
  1. XTANDI [Suspect]
     Active Substance: ENZALUTAMIDE
     Indication: Prostate cancer
     Dosage: UNK, ONCE DAILY (1 EVERY DAYS)
     Route: 065

REACTIONS (4)
  - Head injury [Unknown]
  - Fall [Unknown]
  - Haemorrhage intracranial [Unknown]
  - General physical health deterioration [Unknown]
